FAERS Safety Report 4556994-7 (Version None)
Quarter: 2005Q1

REPORT INFORMATION
  Report Type: 
  Country: None (occurrence: None)
  Receive Date: 20050118
  Receipt Date: 20050103
  Transmission Date: 20050727
  Serious: Yes (Hospitalization)
  Sender: FDA-Public Use
  Company Number: 2005007753

PATIENT
  Sex: Male
  Weight: 1.93 kg

DRUGS (8)
  1. XANAX [Suspect]
     Indication: ILL-DEFINED DISORDER
     Dosage: 0.5 MG (0.5 MG, 1 IN 1 D), ORAL
     Route: 048
     Dates: start: 20031128
  2. OXAZEPAM [Suspect]
     Indication: ILL-DEFINED DISORDER
     Dosage: 25 MG
     Dates: start: 20040218
  3. MEPRONIZINE (ACEPROMATEZINE, MEPROBAMAE) [Suspect]
     Indication: ILL-DEFINED DISORDER
     Dosage: 1 DF, ORAL
     Route: 048
     Dates: start: 20030721
  4. VALPROMIDE (VALPROMIDE) [Suspect]
     Indication: ILL-DEFINED DISORDER
     Dosage: 600 MG (600 MG, 1 IN 1 D), ORAL
     Route: 048
  5. FLUOXETINE HYDROCHLORIDE [Suspect]
     Indication: ILL-DEFINED DISORDER
     Dosage: 40 MG (20 MG) ORAL
     Route: 048
  6. MILNACIPRAN (MILNACIPRAN) [Suspect]
     Indication: ILL-DEFINED DISORDER
     Dosage: 50 MG , ORAL
     Route: 048
     Dates: start: 20040218
  7. CYAMEMAZINE (CYAMEMAZINE) [Suspect]
     Indication: ILL-DEFINED DISORDER
     Dosage: 25 MG, ORAL
     Route: 048
  8. METHYLDOPA [Concomitant]

REACTIONS (11)
  - APGAR SCORE LOW [None]
  - DEFORMITY THORAX [None]
  - DRUG EXPOSURE DURING PREGNANCY [None]
  - FOETAL CARDIAC DISORDER [None]
  - FOETAL GROWTH RETARDATION [None]
  - GROWTH RETARDATION [None]
  - HYPERTONIA NEONATAL [None]
  - HYPOTONIA NEONATAL [None]
  - IRRITABILITY [None]
  - SMALL FOR DATES BABY [None]
  - TRICUSPID VALVE INCOMPETENCE [None]
